FAERS Safety Report 6130027-3 (Version None)
Quarter: 2009Q1

REPORT INFORMATION
  Report Type: 
  Country: None (occurrence: None)
  Receive Date: 20090323
  Receipt Date: 20090323
  Transmission Date: 20090719
  Serious: Yes (Other)
  Sender: FDA-Public Use
  Company Number: None

PATIENT
  Age: 54 Year
  Sex: Female
  Weight: 52.1637 kg

DRUGS (2)
  1. SEROQUEL [Suspect]
     Indication: DEPRESSION
     Dosage: 1 A DAY PO
     Route: 048
  2. DEPAKOTE [Suspect]
     Indication: DEPRESSION
     Dosage: 2 A DAY PO
     Route: 048

REACTIONS (6)
  - DEPRESSED LEVEL OF CONSCIOUSNESS [None]
  - GAIT DISTURBANCE [None]
  - OVERDOSE [None]
  - PAIN [None]
  - PHYSICAL ASSAULT [None]
  - SPEECH DISORDER [None]
